FAERS Safety Report 24333954 (Version 1)
Quarter: 2024Q3

REPORT INFORMATION
  Report Type: Spontaneous
  Country: ES (occurrence: ES)
  Receive Date: 20240918
  Receipt Date: 20240918
  Transmission Date: 20241017
  Serious: Yes (Other)
  Sender: MYLAN
  Company Number: None

PATIENT
  Sex: Male

DRUGS (1)
  1. FENTANYL [Suspect]
     Active Substance: FENTANYL\FENTANYL CITRATE
     Indication: Post-traumatic pain
     Dosage: UNK
     Route: 062
     Dates: start: 20240704, end: 20240706

REACTIONS (4)
  - Increased upper airway secretion [Recovering/Resolving]
  - Depressed level of consciousness [Recovering/Resolving]
  - Somnolence [Recovering/Resolving]
  - Product administration error [Recovering/Resolving]

NARRATIVE: CASE EVENT DATE: 20240706
